FAERS Safety Report 23202225 (Version 1)
Quarter: 2023Q4

REPORT INFORMATION
  Report Type: Other
  Country: None (occurrence: US)
  Receive Date: 20231120
  Receipt Date: 20231120
  Transmission Date: 20240110
  Serious: Yes (Other)
  Sender: FDA-Public Use
  Company Number: US-The Mentholatum Company-2148467

PATIENT
  Sex: Female

DRUGS (2)
  1. BENZOYL PEROXIDE [Suspect]
     Active Substance: BENZOYL PEROXIDE
     Indication: Acne
     Route: 061
     Dates: start: 20230301, end: 20230728
  2. OXY MAXIMUM ACTION ADVANCED FACE WASH [Suspect]
     Active Substance: BENZOYL PEROXIDE
     Route: 061
     Dates: start: 20230301, end: 20230728

REACTIONS (3)
  - Headache [Recovering/Resolving]
  - Vision blurred [None]
  - Myalgia [None]

NARRATIVE: CASE EVENT DATE: 20230301
